FAERS Safety Report 8205481 (Version 9)
Quarter: 2014Q2

REPORT INFORMATION
  Report Type: Report from Study
  Country: US (occurrence: US)
  Receive Date: 20111028
  Receipt Date: 20140410
  Transmission Date: 20141212
  Serious: Yes (Death, Life-Threatening, Hospitalization)
  Sender: FDA-Public Use
  Company Number: US-EISAI INC-E7389-01653-CLI-US

PATIENT
  Age: 68 Year
  Sex: Male

DRUGS (28)
  1. ERIBULIN [Suspect]
     Indication: BLADDER CANCER
     Dosage: 1.0 MG/M2 (2.12 MG)
     Route: 042
     Dates: start: 20110816, end: 20111011
  2. GEMCITABINE [Suspect]
     Indication: BLADDER CANCER
     Dosage: 1000 MG/M2 (2000 MG)
     Route: 041
     Dates: start: 20110816, end: 20111011
  3. CISPLATIN [Suspect]
     Indication: BLADDER CANCER
     Dosage: 70 MG/M2 (140 MG)
     Route: 041
     Dates: start: 20110816, end: 20111011
  4. LEVOFLOXACIN [Concomitant]
     Indication: NEUTROPENIA
     Route: 048
     Dates: start: 20110826, end: 20110927
  5. DENOSUMAB [Concomitant]
     Indication: METASTASES TO BONE
     Route: 058
     Dates: start: 20110816
  6. MULTIVITAMIN [Concomitant]
     Indication: SUPPLEMENTATION THERAPY
     Route: 048
     Dates: start: 20100329
  7. SIMVASTATIN [Concomitant]
     Indication: HYPERCHOLESTEROLAEMIA
     Route: 048
     Dates: start: 20100329
  8. OXYCODONE [Concomitant]
     Indication: PAIN
     Route: 048
     Dates: start: 20110908
  9. HYDROMORPHONE [Concomitant]
     Indication: PAIN
     Route: 048
     Dates: start: 20110819, end: 20110906
  10. MAGIC MOUTHWASH [Concomitant]
     Indication: MUCOSAL INFLAMMATION
     Route: 048
     Dates: start: 20110823
  11. IBUPROFEN [Concomitant]
     Indication: PAIN
     Route: 048
     Dates: start: 20110823
  12. ZOLPIDEM TARTRATE [Concomitant]
     Indication: INSOMNIA
     Route: 048
     Dates: start: 20110830
  13. OXYCODONE [Concomitant]
     Indication: PAIN
     Route: 048
     Dates: start: 20110906
  14. SENNOSIDES [Concomitant]
     Indication: CONSTIPATION
     Route: 048
     Dates: start: 20110906
  15. PANTOPRAZOLE SODIUM [Concomitant]
     Indication: GASTROOESOPHAGEAL REFLUX DISEASE
     Route: 048
     Dates: start: 20110906, end: 20110927
  16. FUROSEMIDE [Concomitant]
     Indication: HYPERTENSION
     Route: 042
     Dates: start: 20110816
  17. NORMAL SALINE [Concomitant]
     Indication: DEHYDRATION
     Route: 042
     Dates: start: 20110823, end: 20110823
  18. ONDANSETRON [Concomitant]
     Indication: NAUSEA
     Route: 048
     Dates: start: 20110920
  19. METOCLOPRAMIDE [Concomitant]
     Route: 048
     Dates: start: 20110920
  20. FUROSEMIDE [Concomitant]
     Indication: OEDEMA
     Route: 048
     Dates: start: 20111004
  21. NEUPOGEN [Concomitant]
     Indication: NEUTROPHIL COUNT DECREASED
     Route: 058
     Dates: start: 20111017
  22. MAGNESIUM SULFATE [Concomitant]
     Indication: PREMEDICATION
     Route: 042
     Dates: start: 20110816, end: 20111004
  23. MANNITOL [Concomitant]
     Indication: PREMEDICATION
     Route: 042
     Dates: start: 20110816, end: 20111004
  24. POTASSIUM CHLORIDE [Concomitant]
     Indication: PREMEDICATION
     Route: 042
     Dates: start: 20110816, end: 20111004
  25. DEXAMETHASONE [Concomitant]
     Indication: PREMEDICATION
     Route: 042
     Dates: start: 20110816, end: 20111011
  26. DIPHENHYDRAMINE [Concomitant]
     Indication: PREMEDICATION
     Route: 042
     Dates: start: 20110816, end: 20111011
  27. FOSAPREPITANT DIMEGLUMINE [Concomitant]
     Indication: PREMEDICATION
     Route: 042
     Dates: start: 20110816, end: 20111004
  28. PALONOSETRON [Concomitant]
     Indication: PREMEDICATION
     Route: 042
     Dates: start: 20110816, end: 20111011

REACTIONS (2)
  - Intestinal perforation [Not Recovered/Not Resolved]
  - Bacteraemia [Fatal]
